FAERS Safety Report 9703827 (Version 1)
Quarter: 2013Q4

REPORT INFORMATION
  Report Type: Spontaneous
  Country: US (occurrence: None)
  Receive Date: 20131121
  Receipt Date: 20131121
  Transmission Date: 20140711
  Serious: Yes (Life-Threatening, Disabling, Other)
  Sender: FDA-Public Use
  Company Number: None

PATIENT
  Age: 56 Year
  Sex: Female

DRUGS (1)
  1. ZOLEDRONIC ACID [Suspect]
     Indication: OSTEOPOROSIS
     Dosage: IV NURSE LOCAL INFUSION CENTER
     Route: 042
     Dates: start: 20131008, end: 20131008

REACTIONS (7)
  - Pyrexia [None]
  - Chills [None]
  - Enuresis [None]
  - Insomnia [None]
  - Gastrooesophageal reflux disease [None]
  - Agitation [None]
  - Condition aggravated [None]
